FAERS Safety Report 24958289 (Version 2)
Quarter: 2025Q1

REPORT INFORMATION
  Report Type: Spontaneous
  Country: US (occurrence: US)
  Receive Date: 20250212
  Receipt Date: 20250222
  Transmission Date: 20250408
  Serious: Yes (Death, Hospitalization, Other)
  Sender: AUROBINDO
  Company Number: US-AUROBINDO-AUR-APL-2025-005899

PATIENT
  Sex: Male

DRUGS (10)
  1. FLUCONAZOLE [Suspect]
     Active Substance: FLUCONAZOLE
     Indication: Acanthamoeba infection
     Route: 065
  2. FLUCYTOSINE [Suspect]
     Active Substance: FLUCYTOSINE
     Indication: Acanthamoeba infection
     Route: 065
  3. MILTEFOSINE [Suspect]
     Active Substance: MILTEFOSINE
     Indication: Acanthamoeba infection
     Route: 065
  4. PENTAMIDINE [Suspect]
     Active Substance: PENTAMIDINE
     Indication: Acanthamoeba infection
     Route: 065
  5. SULFADIAZINE [Suspect]
     Active Substance: SULFADIAZINE
     Indication: Acanthamoeba infection
     Route: 065
  6. DUPILUMAB [Concomitant]
     Active Substance: DUPILUMAB
     Indication: Chronic rhinosinusitis with nasal polyps
     Route: 065
     Dates: start: 202009
  7. MOMETASONE [Concomitant]
     Active Substance: MOMETASONE
     Indication: Irrigation therapy
     Route: 065
     Dates: start: 202009
  8. SALINE [Concomitant]
     Active Substance: SODIUM CHLORIDE
     Indication: Irrigation therapy
     Route: 065
  9. RITUXIMAB [Concomitant]
     Active Substance: RITUXIMAB
     Indication: Acanthamoeba infection
     Route: 065
  10. CYCLOPHOSPHAMIDE [Concomitant]
     Active Substance: CYCLOPHOSPHAMIDE
     Indication: Acanthamoeba infection
     Route: 065

REACTIONS (1)
  - Drug ineffective [Fatal]
